FAERS Safety Report 7600938-8 (Version None)
Quarter: 2011Q3

REPORT INFORMATION
  Report Type: 
  Country: None (occurrence: None)
  Receive Date: 20110711
  Receipt Date: 20110701
  Transmission Date: 20111222
  Serious: Yes (Other)
  Sender: FDA-Public Use
  Company Number: US-ASTRAZENECA-2011SE40027

PATIENT
  Age: 36 Year
  Sex: Female

DRUGS (1)
  1. SEROQUEL [Suspect]
     Indication: DEPRESSION
     Route: 048

REACTIONS (8)
  - SYNCOPE [None]
  - VISUAL ACUITY REDUCED [None]
  - LOSS OF CONSCIOUSNESS [None]
  - FALL [None]
  - INCREASED APPETITE [None]
  - DEPRESSED LEVEL OF CONSCIOUSNESS [None]
  - WEIGHT INCREASED [None]
  - AMNESIA [None]
